FAERS Safety Report 4315692-5 (Version None)
Quarter: 2004Q1

REPORT INFORMATION
  Report Type: 
  Country: None (occurrence: None)
  Receive Date: 20040310
  Receipt Date: 20040301
  Transmission Date: 20041129
  Serious: Yes (Hospitalization, Other)
  Sender: FDA-Public Use
  Company Number: 200314252BCC

PATIENT
  Age: 77 Year
  Sex: Female
  Weight: 90.7194 kg

DRUGS (13)
  1. ASPIRIN [Suspect]
     Dosage: 325 MG, QD, ORAL; 81 MG, QD, ORAL
     Route: 048
     Dates: start: 20030701
  2. ASPIRIN [Suspect]
     Dosage: 325 MG, QD, ORAL; 81 MG, QD, ORAL
     Route: 048
     Dates: start: 20040101
  3. ALTACE [Concomitant]
  4. RANITIDINE [Concomitant]
  5. LANOXIN [Concomitant]
  6. ADVAIR DISKUS 100/50 [Concomitant]
  7. GLYBURIDE [Concomitant]
  8. LANTUS [Concomitant]
  9. LESCOL [Concomitant]
  10. ALLEGRA [Concomitant]
  11. DILTIAZEM [Concomitant]
  12. TRAVATAN [Concomitant]
  13. DIAMOX [Concomitant]

REACTIONS (2)
  - BLOOD GLUCOSE INCREASED [None]
  - CELLULITIS [None]
